FAERS Safety Report 25138599 (Version 1)
Quarter: 2025Q1

REPORT INFORMATION
  Report Type: Report from Study
  Country: US (occurrence: US)
  Receive Date: 20250330
  Receipt Date: 20250330
  Transmission Date: 20250408
  Serious: Yes (Hospitalization, Other)
  Sender: ABBVIE
  Company Number: US-ABBVIE-6192229

PATIENT
  Age: 82 Year
  Sex: Female

DRUGS (1)
  1. CREON [Suspect]
     Active Substance: PANCRELIPASE AMYLASE\PANCRELIPASE LIPASE\PANCRELIPASE PROTEASE
     Indication: Product used for unknown indication
     Route: 048
     Dates: start: 202406

REACTIONS (3)
  - Hospitalisation [Recovered/Resolved]
  - Memory impairment [Unknown]
  - Medical device implantation [Unknown]

NARRATIVE: CASE EVENT DATE: 20250320
